FAERS Safety Report 7603200-2 (Version None)
Quarter: 2011Q3

REPORT INFORMATION
  Report Type: 
  Country: None (occurrence: None)
  Receive Date: 20110711
  Receipt Date: 20110711
  Transmission Date: 20111222
  Serious: Yes (Life-Threatening, Hospitalization)
  Sender: FDA-Public Use
  Company Number: None

PATIENT
  Age: 34 Year
  Sex: Female
  Weight: 80.3 kg

DRUGS (4)
  1. TAMOXIFEN CITRATE [Concomitant]
  2. ABRAXANE [Concomitant]
  3. AVASTIN [Suspect]
     Indication: INVESTIGATION
     Dosage: 10MG/KG Q2W IV
     Route: 042
     Dates: end: 20110607
  4. CARBOPLATIN [Concomitant]

REACTIONS (4)
  - PULMONARY EMBOLISM [None]
  - MEDIASTINAL MASS [None]
  - BODY TEMPERATURE INCREASED [None]
  - BREAST ABSCESS [None]
